FAERS Safety Report 12081253 (Version 10)
Quarter: 2016Q3

REPORT INFORMATION
  Report Type: Spontaneous
  Country: JP (occurrence: JP)
  Receive Date: 20160216
  Receipt Date: 20160726
  Transmission Date: 20161109
  Serious: Yes (Life-Threatening, Hospitalization, Other)
  Sender: FDA-Public Use
  Company Number: JP-009507513-1602JPN007111

PATIENT
  Age: 42 Year
  Sex: Male
  Weight: 62 kg

DRUGS (7)
  1. REBETOL [Interacting]
     Active Substance: RIBAVIRIN
     Indication: CHRONIC HEPATITIS C
     Dosage: 400 MG TWICE A DAY
     Route: 048
     Dates: start: 20070219, end: 20070505
  2. ADALAT [Concomitant]
     Active Substance: NIFEDIPINE
     Indication: HYPERTENSION
     Dosage: 20 MG DAILY, DOSE FREQUENCY 2
     Route: 048
  3. PEGINTRON [Suspect]
     Active Substance: PEGINTERFERON ALFA-2B
     Indication: CHRONIC HEPATITIS C
     Dosage: 100 MICROGRAM WEEKLY, DIVIDED DOSE FREQUENCY UNKNOWN
     Route: 058
     Dates: start: 20070219, end: 20070427
  4. STOCRIN TABLETS 600MG [Concomitant]
     Active Substance: EFAVIRENZ
     Indication: HIV INFECTION
     Dosage: DAILY DOSAGE UNKNOWN
     Route: 048
     Dates: start: 20001004, end: 20070507
  5. ZERIT [Concomitant]
     Active Substance: STAVUDINE
     Indication: HIV INFECTION
     Dosage: 80 MG, QD, DOSE FREQUENCY 2, FORMULATION: POR
     Route: 048
     Dates: start: 20001004, end: 20070507
  6. VIRACEPT [Concomitant]
     Active Substance: NELFINAVIR MESYLATE
     Indication: HIV INFECTION
     Dosage: 2500 MG DAILY, DOSE FREQUENCY 2
     Route: 048
     Dates: start: 20001004, end: 20070507
  7. VIDEX [Interacting]
     Active Substance: DIDANOSINE
     Indication: HIV INFECTION
     Dosage: 1 CAPSULE TWICE A DAY
     Route: 048
     Dates: start: 20001004, end: 20070507

REACTIONS (4)
  - Drug ineffective [Unknown]
  - CD4 lymphocytes decreased [Unknown]
  - Lactic acidosis [Recovered/Resolved]
  - Drug interaction [Unknown]

NARRATIVE: CASE EVENT DATE: 20070504
